FAERS Safety Report 12241236 (Version 1)
Quarter: 2016Q2

REPORT INFORMATION
  Report Type: Spontaneous
  Country: US (occurrence: None)
  Receive Date: 20160405
  Receipt Date: 20160405
  Transmission Date: 20160815
  Serious: No
  Sender: FDA-Public Use
  Company Number: None

PATIENT
  Sex: Female

DRUGS (1)
  1. AFINITOR [Suspect]
     Active Substance: EVEROLIMUS
     Route: 048
     Dates: start: 20160213

REACTIONS (7)
  - Dry mouth [None]
  - Dysgeusia [None]
  - Constipation [None]
  - Skin exfoliation [None]
  - Diarrhoea [None]
  - Decreased appetite [None]
  - Dizziness [None]
